FAERS Safety Report 5990915-5 (Version None)
Quarter: 2008Q4

REPORT INFORMATION
  Report Type: 
  Country: None (occurrence: None)
  Receive Date: 20081202
  Receipt Date: 20080613
  Transmission Date: 20090506
  Serious: Yes (Other)
  Sender: FDA-Public Use
  Company Number: WAES 0806USA02852

PATIENT
  Age: 78 Year
  Sex: Female

DRUGS (4)
  1. FOSAMAX [Suspect]
     Indication: OSTEOPOROSIS
     Dosage: 10 MG/DAILY/PO ; 70 MG/WKY/PO
     Route: 048
     Dates: end: 20080609
  2. FOSAMAX [Suspect]
     Indication: OSTEOPOROSIS
     Dosage: 10 MG/DAILY/PO ; 70 MG/WKY/PO
     Route: 048
     Dates: start: 19970101
  3. COUMADIN [Concomitant]
  4. LISINOPRIL [Concomitant]

REACTIONS (1)
  - OSTEONECROSIS [None]
